FAERS Safety Report 5179683-7 (Version None)
Quarter: 2006Q4

REPORT INFORMATION
  Report Type: 
  Country: None (occurrence: None)
  Receive Date: 20061211
  Receipt Date: 20061201
  Transmission Date: 20070319
  Serious: Yes (Death, Hospitalization)
  Sender: FDA-Public Use
  Company Number: 163-21880-06101412

PATIENT
  Age: 64 Year
  Sex: Male

DRUGS (21)
  1. REVLIMID [Suspect]
     Indication: MYELODYSPLASTIC SYNDROME
     Dosage: 10 MG, 1 IN 1 D, ORAL
     Route: 048
     Dates: start: 20060828, end: 20061003
  2. DEXAMETHASONE TAB [Suspect]
     Indication: DRUG USE FOR UNKNOWN INDICATION
  3. NEULASTA [Concomitant]
  4. K-DUR 10 [Concomitant]
  5. MAGNESIUM OXIDE (MAGNESIUM OXIDE) [Concomitant]
  6. ATENOLOL [Concomitant]
  7. LEVAQUIN [Concomitant]
  8. RIFAMPICIN [Concomitant]
  9. CLINDAMYCIN (CLINDAMYCIN) [Concomitant]
  10. VANCOMYCIN [Concomitant]
  11. NEUPOGEN [Concomitant]
  12. DILAUDID PCA (HYDROMORPHONE HYDROCHLORIDE) [Concomitant]
  13. PROTONIX [Concomitant]
  14. PROCRIT [Concomitant]
  15. SENOKOT [Concomitant]
  16. COLACE (DOCUSATE SODIUM) [Concomitant]
  17. AFRIN (AFRIN /OLD FORM/) [Concomitant]
  18. AMBIEN [Concomitant]
  19. PIPERACILLIN-TAZOBACTAM (PIPERACILLIN W/TAZOBACTAM) [Concomitant]
  20. CASPOFUNGIN (CASPOFUNGIN) [Concomitant]
  21. VANCO (VANCOMYCIN HYDROCHLORIDE) [Concomitant]

REACTIONS (6)
  - CELLULITIS [None]
  - MYELODYSPLASTIC SYNDROME [None]
  - PANCYTOPENIA [None]
  - RASH ERYTHEMATOUS [None]
  - RASH MACULO-PAPULAR [None]
  - SINUSITIS [None]
